FAERS Safety Report 5133751-4 (Version None)
Quarter: 2006Q4

REPORT INFORMATION
  Report Type: 
  Country: None (occurrence: None)
  Receive Date: 20061018
  Receipt Date: 20061005
  Transmission Date: 20070319
  Serious: Yes (Other)
  Sender: FDA-Public Use
  Company Number: 2006122794

PATIENT
  Sex: Female

DRUGS (1)
  1. LYRICA [Suspect]
     Indication: RADICULOPATHY

REACTIONS (1)
  - HALLUCINATION, VISUAL [None]
